FAERS Safety Report 12578793 (Version 1)
Quarter: 2016Q3

REPORT INFORMATION
  Report Type: Spontaneous
  Country: US (occurrence: US)
  Receive Date: 20160721
  Receipt Date: 20160721
  Transmission Date: 20161109
  Serious: Yes (Hospitalization)
  Sender: FDA-Public Use
  Company Number: US-STRIDES ARCOLAB LIMITED-2016SP000006

PATIENT

DRUGS (3)
  1. TACROLIMUS. [Concomitant]
     Active Substance: TACROLIMUS
     Indication: LIVER TRANSPLANT
     Dosage: 6 MG, QD
  2. MYCOPHENOLATE MOFETIL. [Suspect]
     Active Substance: MYCOPHENOLATE MOFETIL
     Indication: LIVER TRANSPLANT
     Dosage: 2 G, QD
  3. PREDNISOLONE. [Concomitant]
     Active Substance: PREDNISOLONE
     Indication: LIVER TRANSPLANT
     Dosage: 2.5 MG, QD

REACTIONS (2)
  - Odynophagia [Recovered/Resolved]
  - Aphthous ulcer [Recovered/Resolved]
